FAERS Safety Report 19363856 (Version 4)
Quarter: 2021Q4

REPORT INFORMATION
  Report Type: Spontaneous
  Country: JP (occurrence: JP)
  Receive Date: 20210602
  Receipt Date: 20211104
  Transmission Date: 20220303
  Serious: Yes (Hospitalization)
  Sender: FDA-Public Use
  Company Number: JP-DSJP-DSJ-2021-115293

PATIENT
  Age: 69 Year
  Sex: Female
  Weight: 66 kg

DRUGS (10)
  1. OLMESARTAN MEDOXOMIL [Suspect]
     Active Substance: OLMESARTAN MEDOXOMIL
     Indication: Essential hypertension
     Dosage: 10 MG, QD
     Route: 048
     Dates: start: 2006, end: 20190731
  2. VOGLIBOSE [Concomitant]
     Active Substance: VOGLIBOSE
     Indication: Diabetes mellitus
     Dosage: 0.3 MG, TID
     Route: 048
     Dates: start: 2006
  3. ALLOPURINOL [Concomitant]
     Active Substance: ALLOPURINOL
     Indication: Hyperuricaemia
     Dosage: 100 MG, QD
     Route: 048
     Dates: start: 2006
  4. JANUVIA [Concomitant]
     Active Substance: SITAGLIPTIN PHOSPHATE
     Indication: Diabetes mellitus
     Dosage: 50 MG, QD
     Route: 048
     Dates: start: 2006
  5. PROPIVERINE HYDROCHLORIDE [Concomitant]
     Active Substance: PROPIVERINE HYDROCHLORIDE
     Indication: Spinal cord infarction
     Dosage: 10 MG, BID
     Route: 048
     Dates: start: 2006
  6. PROPIVERINE HYDROCHLORIDE [Concomitant]
     Active Substance: PROPIVERINE HYDROCHLORIDE
     Indication: Hypertonic bladder
  7. MIRABEGRON [Concomitant]
     Active Substance: MIRABEGRON
     Indication: Spinal cord infarction
     Dosage: 25 MG, BID
     Route: 048
     Dates: start: 2006
  8. MIRABEGRON [Concomitant]
     Active Substance: MIRABEGRON
     Indication: Hypertonic bladder
  9. PRAVASTATIN SODIUM [Concomitant]
     Active Substance: PRAVASTATIN SODIUM
     Indication: Hyperlipidaemia
     Dosage: 10 MG, QD
     Route: 048
     Dates: start: 2006
  10. MAGNESIUM OXIDE [Concomitant]
     Active Substance: MAGNESIUM OXIDE
     Indication: Constipation
     Dosage: 330 MG, BID
     Route: 048
     Dates: start: 2006

REACTIONS (2)
  - Gastroduodenal ulcer [Recovered/Resolved]
  - Malabsorption [Recovered/Resolved]
